FAERS Safety Report 10244788 (Version 1)
Quarter: 2014Q1

REPORT INFORMATION
  Report Type: Spontaneous
  Country: US (occurrence: None)
  Receive Date: 20140306
  Receipt Date: 20140306
  Transmission Date: 20141002
  Serious: Yes (Other)
  Sender: FDA-Public Use
  Company Number: 163-21880-13043327

PATIENT
  Age: 68 Year
  Sex: Male

DRUGS (6)
  1. REVLIMID (LENALIDOMIDE) (25 MILLIGRAM, CAPSULES) [Suspect]
     Indication: PLASMA CELL MYELOMA
     Route: 048
     Dates: start: 20130220
  2. VALACYCLOVIR HCL [Concomitant]
  3. PRAVASTATIN SODIUM [Concomitant]
  4. HYDROCHLOROTHIAZIDE [Concomitant]
  5. DEXAMETHASONE [Concomitant]
  6. ASPIRINE (ACETYLSALICYLIC ACID) [Concomitant]

REACTIONS (4)
  - Deep vein thrombosis [None]
  - Diarrhoea [None]
  - Fatigue [None]
  - Local swelling [None]
